FAERS Safety Report 11233548 (Version 1)
Quarter: 2015Q3

REPORT INFORMATION
  Report Type: Spontaneous
  Country: MX (occurrence: MX)
  Receive Date: 20150702
  Receipt Date: 20150702
  Transmission Date: 20151125
  Serious: Yes (Death)
  Sender: FDA-Public Use
  Company Number: MX-ROCHE-1602288

PATIENT
  Age: 35 Year
  Sex: Female
  Weight: 67 kg

DRUGS (3)
  1. DOCETAXEL. [Suspect]
     Active Substance: DOCETAXEL
     Indication: BREAST CANCER METASTATIC
     Dosage: 7 CYCLES APPLIED
     Route: 065
     Dates: start: 20140820, end: 20150620
  2. TRASTUZUMAB [Suspect]
     Active Substance: TRASTUZUMAB
     Indication: BREAST CANCER METASTATIC
     Dosage: 7 CYCLES APPLIED
     Route: 065
     Dates: start: 20140820, end: 20150620
  3. CAPECITABINE. [Suspect]
     Active Substance: CAPECITABINE
     Indication: BREAST CANCER METASTATIC
     Dosage: DAILY FOR 14 DAYS BY 7 OF REST, 7 CYCLES APPLIED
     Route: 065
     Dates: start: 20140820, end: 20150620

REACTIONS (1)
  - Death [Fatal]
